FAERS Safety Report 18298333 (Version 3)
Quarter: 2022Q1

REPORT INFORMATION
  Report Type: Spontaneous
  Country: US (occurrence: US)
  Receive Date: 20200922
  Receipt Date: 20220304
  Transmission Date: 20220423
  Serious: No
  Sender: FDA-Public Use
  Company Number: US-PFIZER INC-2020364720

PATIENT
  Age: 19 Year
  Sex: Female

DRUGS (5)
  1. EUCRISA [Suspect]
     Active Substance: CRISABOROLE
     Indication: Dermatitis
     Dosage: 1 UNK, 2X/DAY (APPLY ON SKIN TWICE A DAY 60 G TUBE)
     Route: 061
  2. EUCRISA [Suspect]
     Active Substance: CRISABOROLE
     Indication: Skin papilloma
     Dosage: UNK, (APPLY TO AA BID 100 G TUBE)
     Route: 061
  3. EUCRISA [Suspect]
     Active Substance: CRISABOROLE
     Indication: Eczema
  4. EUCRISA [Suspect]
     Active Substance: CRISABOROLE
     Indication: Eczema asteatotic
  5. EUCRISA [Suspect]
     Active Substance: CRISABOROLE
     Indication: Eczema nummular

REACTIONS (2)
  - Off label use [Unknown]
  - Rash [Unknown]
